FAERS Safety Report 4453981-4 (Version None)
Quarter: 2004Q3

REPORT INFORMATION
  Report Type: 
  Country: None (occurrence: None)
  Receive Date: 20040920
  Receipt Date: 20040914
  Transmission Date: 20050211
  Serious: Yes (Hospitalization)
  Sender: FDA-Public Use
  Company Number: FR-GLAXOSMITHKLINE-B0345252A

PATIENT
  Age: 56 Year
  Sex: Male

DRUGS (5)
  1. NARAMIG [Suspect]
     Indication: MIGRAINE
     Route: 048
     Dates: start: 20040806, end: 20040809
  2. KETOPROFEN [Suspect]
     Indication: NECK PAIN
     Route: 048
     Dates: start: 20040809, end: 20040820
  3. PROPOFAN [Suspect]
     Indication: NECK PAIN
     Route: 048
     Dates: start: 20040809
  4. CLONAZEPAM [Suspect]
     Route: 048
     Dates: start: 20040806, end: 20040820
  5. ACETAMINOPHEN [Concomitant]
     Route: 048
     Dates: start: 20040809, end: 20040820

REACTIONS (3)
  - ABDOMINAL PAIN [None]
  - NAUSEA [None]
  - PANCREATITIS ACUTE [None]
